FAERS Safety Report 16724568 (Version 20)
Quarter: 2021Q4

REPORT INFORMATION
  Report Type: Spontaneous
  Country: US (occurrence: US)
  Receive Date: 20190821
  Receipt Date: 20211111
  Transmission Date: 20220303
  Serious: Yes (Other)
  Sender: FDA-Public Use
  Company Number: US-PFIZER INC-2019359011

PATIENT
  Age: 70 Year
  Sex: Female
  Weight: 122 kg

DRUGS (3)
  1. LYRICA [Suspect]
     Active Substance: PREGABALIN
     Indication: Neuropathy peripheral
     Dosage: 300 MG, 2X/DAY
     Route: 048
  2. LYRICA [Suspect]
     Active Substance: PREGABALIN
     Indication: Diabetic neuropathy
     Dosage: 300 MG, DAILY
     Route: 048
  3. LYRICA [Suspect]
     Active Substance: PREGABALIN
     Dosage: 300 MG, 2X/DAY (300 MG TWICE A DAY, MORNING AND NIGHT, BY MOUTH)
     Route: 048
     Dates: start: 2016

REACTIONS (20)
  - Cataract [Unknown]
  - Blood pressure increased [Unknown]
  - Muscle spasms [Unknown]
  - Swelling face [Unknown]
  - Diarrhoea [Unknown]
  - Weight decreased [Unknown]
  - Pain [Not Recovered/Not Resolved]
  - Crying [Unknown]
  - Hyperhidrosis [Unknown]
  - Panic attack [Unknown]
  - Palpitations [Unknown]
  - Blood glucose increased [Recovering/Resolving]
  - Fatigue [Unknown]
  - Decreased appetite [Unknown]
  - Pruritus [Unknown]
  - Illness [Unknown]
  - Therapeutic response unexpected [Unknown]
  - Vomiting [Unknown]
  - Intentional product misuse [Unknown]
  - Product prescribing error [Unknown]
